FAERS Safety Report 22309184 (Version 1)
Quarter: 2023Q2

REPORT INFORMATION
  Report Type: Spontaneous
  Country: US (occurrence: US)
  Receive Date: 20230511
  Receipt Date: 20230511
  Transmission Date: 20230722
  Serious: Yes (Other)
  Sender: FDA-Public Use
  Company Number: US-MYLANLABS-2023M1048625

PATIENT

DRUGS (1)
  1. ATORVASTATIN [Suspect]
     Active Substance: ATORVASTATIN
     Indication: Blood pressure abnormal
     Dosage: UNK
     Route: 065

REACTIONS (5)
  - Cerebrospinal fluid leakage [Unknown]
  - Disorientation [Unknown]
  - Dizziness [Unknown]
  - Off label use [Unknown]
  - Therapeutic response unexpected [Unknown]
